FAERS Safety Report 4770860-3 (Version None)
Quarter: 2005Q3

REPORT INFORMATION
  Report Type: 
  Country: None (occurrence: None)
  Receive Date: 20050915
  Receipt Date: 20050831
  Transmission Date: 20060218
  Serious: Yes (Life-Threatening, Disabling)
  Sender: FDA-Public Use
  Company Number: PHFR2005GB02930

PATIENT
  Age: 20 Year
  Sex: Male
  Weight: 90 kg

DRUGS (5)
  1. CLOZARIL [Suspect]
     Indication: SCHIZOPHRENIA
     Dosage: 125MG/DAY
     Route: 048
  2. CLOZARIL [Suspect]
     Dosage: 200MG/DAY
  3. CLOZARIL [Suspect]
     Dosage: 300MG/DAY
  4. CLOZARIL [Suspect]
     Dosage: 225MG/DAY
     Route: 048
  5. SEROXAT [Concomitant]
     Indication: OBSESSIVE-COMPULSIVE DISORDER
     Dosage: 60 MG/DAY
     Route: 048

REACTIONS (9)
  - COMPULSIONS [None]
  - CONDITION AGGRAVATED [None]
  - INTENTIONAL SELF-INJURY [None]
  - OBSESSIVE THOUGHTS [None]
  - OBSESSIVE-COMPULSIVE DISORDER [None]
  - PSYCHOTIC DISORDER [None]
  - SOCIAL AVOIDANT BEHAVIOUR [None]
  - STRESS [None]
  - SUICIDAL IDEATION [None]
